FAERS Safety Report 9266255 (Version 2)
Quarter: 2013Q2

REPORT INFORMATION
  Report Type: Spontaneous
  Country: US (occurrence: US)
  Receive Date: 20130502
  Receipt Date: 20130608
  Transmission Date: 20140414
  Serious: No
  Sender: FDA-Public Use
  Company Number: US-009507513-1304USA015967

PATIENT
  Age: 21 Year
  Sex: Female
  Weight: 136.5 kg

DRUGS (2)
  1. NEXPLANON [Suspect]
     Dosage: UNK
     Route: 059
     Dates: start: 20130403
  2. NEXPLANON [Suspect]
     Dosage: UNK
     Route: 059

REACTIONS (4)
  - Device difficult to use [Recovered/Resolved]
  - Application site discomfort [Recovered/Resolved]
  - Medical device complication [Recovered/Resolved]
  - Product quality issue [Unknown]
